FAERS Safety Report 6040901-4 (Version None)
Quarter: 2009Q1

REPORT INFORMATION
  Report Type: 
  Country: None (occurrence: None)
  Receive Date: 20090116
  Receipt Date: 20080624
  Transmission Date: 20090719
  Serious: No
  Sender: FDA-Public Use
  Company Number: US-BRISTOL-MYERS SQUIBB COMPANY-14239271

PATIENT

DRUGS (1)
  1. ABILIFY [Suspect]
     Dosage: TAKEN DOSAGE FORM=30MG TABS INSTEAD OF (3) 10MG TABS

REACTIONS (2)
  - INCORRECT DOSE ADMINISTERED [None]
  - NO ADVERSE EVENT [None]
